FAERS Safety Report 4339624-9 (Version None)
Quarter: 2004Q1

REPORT INFORMATION
  Report Type: 
  Country: None (occurrence: None)
  Receive Date: 20040329
  Receipt Date: 20040220
  Transmission Date: 20041129
  Serious: No
  Sender: FDA-Public Use
  Company Number: 04P-163-0250969-00

PATIENT
  Age: 95 Year
  Sex: Female
  Weight: 47.6277 kg

DRUGS (10)
  1. HUMIRA [Suspect]
     Indication: RHEUMATOID ARTHRITIS
     Dosage: 40 MG, 1 IN 2 WK, SUBCUTANEOUS
     Route: 058
     Dates: start: 20030801
  2. RISEDRONATE SODIUM [Concomitant]
  3. DIOVAN [Concomitant]
  4. AMLODIPINE BESYLATE [Concomitant]
  5. PREDNISONE [Concomitant]
  6. DARVOCET [Concomitant]
  7. ROFECOXIB [Concomitant]
  8. RANITIDINE HYDROCHLORIDE [Concomitant]
  9. CALCIUM CARBONATE [Concomitant]
  10. METHOTREXATE [Concomitant]

REACTIONS (4)
  - ALOPECIA [None]
  - FEELING ABNORMAL [None]
  - MOVEMENT DISORDER [None]
  - TREMOR [None]
